FAERS Safety Report 23216907 (Version 1)
Quarter: 2023Q4

REPORT INFORMATION
  Report Type: Spontaneous
  Country: US (occurrence: US)
  Receive Date: 20231122
  Receipt Date: 20231122
  Transmission Date: 20240109
  Serious: Yes (Hospitalization)
  Sender: FDA-Public Use
  Company Number: US-STRIDES ARCOLAB LIMITED-2023SP017441

PATIENT
  Age: 44 Year
  Sex: Female

DRUGS (3)
  1. HYDROCORTISONE [Suspect]
     Active Substance: HYDROCORTISONE
     Indication: Adrenal insufficiency
     Dosage: UNK (STRESS DOSE WAS GIVEN)
     Route: 065
  2. HYDROCORTISONE [Suspect]
     Active Substance: HYDROCORTISONE
     Dosage: UNK (DOSE WAS GRADUALLY TAPERED)
     Route: 065
  3. HYDROCORTISONE [Suspect]
     Active Substance: HYDROCORTISONE
     Dosage: UNK (DOSE WAS TAPERED TO PHYSIOLOGIC DOSE)
     Route: 065

REACTIONS (4)
  - Suicidal ideation [Recovered/Resolved]
  - Substance-induced psychotic disorder [Recovered/Resolved]
  - Catatonia [Recovered/Resolved]
  - Off label use [Unknown]
